FAERS Safety Report 10025909 (Version 3)
Quarter: 2014Q2

REPORT INFORMATION
  Report Type: Report from Study
  Country: NL (occurrence: NL)
  Receive Date: 20140320
  Receipt Date: 20140516
  Transmission Date: 20141212
  Serious: Yes (Other)
  Sender: FDA-Public Use
  Company Number: NL-BAXTER-2014BAX013250

PATIENT
  Sex: Female

DRUGS (3)
  1. KIOVIG, 100 MG/ML, OPLOSSING VOOR INFUSIE  (30 G/300 ML) [Suspect]
     Indication: POLYNEUROPATHY
     Route: 065
     Dates: start: 20130902
  2. KIOVIG, 100 MG/ML, OPLOSSING VOOR INFUSIE  (30 G/300 ML) [Suspect]
     Indication: OFF LABEL USE
     Route: 065
     Dates: start: 20140221
  3. KIOVIG, 100 MG/ML, OPLOSSING VOOR INFUSIE  (30 G/300 ML) [Suspect]
     Route: 065
     Dates: start: 20140311, end: 20140311

REACTIONS (1)
  - Drug effect incomplete [Unknown]
